FAERS Safety Report 21782160 (Version 1)
Quarter: 2022Q4

REPORT INFORMATION
  Report Type: Spontaneous
  Country: NL (occurrence: NL)
  Receive Date: 20221227
  Receipt Date: 20221227
  Transmission Date: 20230112
  Serious: Yes (Other)
  Sender: FDA-Public Use
  Company Number: None

PATIENT
  Sex: Female
  Weight: 58 kg

DRUGS (1)
  1. NAPROXEN SODIUM [Suspect]
     Active Substance: NAPROXEN SODIUM
     Indication: Dysmenorrhoea
     Dosage: 2X IN 1 DOSE
     Dates: start: 20221120, end: 20221121

REACTIONS (1)
  - Gastric ulcer [Recovered/Resolved]
